FAERS Safety Report 25978524 (Version 1)
Quarter: 2025Q4

REPORT INFORMATION
  Report Type: Spontaneous
  Country: US (occurrence: US)
  Receive Date: 20251030
  Receipt Date: 20251030
  Transmission Date: 20260118
  Serious: Yes (Hospitalization)
  Sender: STRIDES
  Company Number: US-STRIDES ARCOLAB LIMITED-2025SP008546

PATIENT
  Sex: Female
  Weight: 22 kg

DRUGS (1)
  1. ALBUTEROL [Suspect]
     Active Substance: ALBUTEROL
     Indication: Bronchospasm
     Dosage: UNK
     Route: 065

REACTIONS (1)
  - Drug ineffective [Unknown]
